FAERS Safety Report 9928528 (Version 1)
Quarter: 2014Q1

REPORT INFORMATION
  Report Type: Spontaneous
  Country: US (occurrence: None)
  Receive Date: 20140225
  Receipt Date: 20140225
  Transmission Date: 20141002
  Serious: Yes (Hospitalization)
  Sender: FDA-Public Use
  Company Number: 2014AP001419

PATIENT
  Age: 31 Year
  Sex: Female

DRUGS (5)
  1. LISINOPRIL [Suspect]
  2. LOSARTAN POTASSIUM [Suspect]
     Indication: HYPERTENSION
  3. LOSARTAN POTASSIUM [Suspect]
     Indication: COUGH
  4. NIFEDIPINE [Concomitant]
  5. CLONIDINE [Concomitant]

REACTIONS (2)
  - Small bowel angioedema [None]
  - Cough [None]
